FAERS Safety Report 6586739-0 (Version None)
Quarter: 2010Q1

REPORT INFORMATION
  Report Type: 
  Country: None (occurrence: None)
  Receive Date: 20100217
  Receipt Date: 20090814
  Transmission Date: 20100710
  Serious: No
  Sender: FDA-Public Use
  Company Number: US-ALLERGAN-0909635US

PATIENT
  Age: 45 Year
  Sex: Female

DRUGS (20)
  1. BOTOX [Suspect]
     Indication: TORTICOLLIS
     Dosage: 300 UNITS, SINGLE
     Route: 030
     Dates: start: 20090415, end: 20090415
  2. BOTOX [Suspect]
     Indication: MUSCLE TWITCHING
     Dosage: 305 UNITS, SINGLE
     Route: 030
     Dates: start: 20090727, end: 20090727
  3. BOTOX [Suspect]
     Indication: BLEPHAROSPASM
     Dosage: EVERY 3 - 4 MONTHS
     Route: 030
     Dates: start: 20070625
  4. BOTOX [Suspect]
     Indication: SKIN TIGHTNESS
  5. BOTOX [Suspect]
     Indication: DYSTONIA
  6. KEPPRA [Concomitant]
     Indication: NEURALGIA
     Dosage: 500 MG, BID
     Route: 048
  7. KEPPRA [Concomitant]
     Indication: PAIN MANAGEMENT
  8. LAMICTAL [Concomitant]
     Indication: NEURALGIA
     Dosage: 100 MG, BID
     Route: 048
  9. LAMICTAL [Concomitant]
     Indication: PAIN MANAGEMENT
  10. MORPHINE [Concomitant]
     Indication: PAIN
     Dosage: 15 MG, Q6HR
     Route: 048
  11. HYDROMORPHONE HYDROCHLORIDE [Concomitant]
     Indication: PAIN
     Dosage: 2 MG, PRN
     Route: 048
  12. HYDROMORPHONE HYDROCHLORIDE [Concomitant]
     Indication: PAIN MANAGEMENT
  13. VALIUM [Concomitant]
     Indication: ANXIETY
     Dosage: 5 MG, QID
     Route: 048
  14. VALIUM [Concomitant]
     Indication: PAIN MANAGEMENT
  15. LEVOTHYROXINE SODIUM [Concomitant]
     Indication: HYPOTHYROIDISM
  16. CLONAZEPAM [Concomitant]
     Indication: ANXIETY
     Dosage: 1 MG, TID
     Route: 048
  17. CLONAZEPAM [Concomitant]
     Indication: MENTAL DISORDER
  18. EFFEXOR [Concomitant]
     Indication: ANXIETY
     Dosage: 300 MG, QAM
  19. EFFEXOR [Concomitant]
     Indication: MENTAL DISORDER
  20. MS CONTIN [Concomitant]
     Dosage: 15 MG, QID

REACTIONS (9)
  - DROOLING [None]
  - DRUG INEFFECTIVE [None]
  - DRY EYE [None]
  - EXPIRED DRUG ADMINISTERED [None]
  - FACIAL PARESIS [None]
  - HEADACHE [None]
  - LACRIMATION INCREASED [None]
  - SPEECH DISORDER [None]
  - TORTICOLLIS [None]
